FAERS Safety Report 13976880 (Version 2)
Quarter: 2017Q3

REPORT INFORMATION
  Report Type: Spontaneous
  Country: NO (occurrence: NO)
  Receive Date: 20170914
  Receipt Date: 20170929
  Transmission Date: 20171128
  Serious: Yes (Death, Other)
  Sender: FDA-Public Use
  Company Number: NO-MYLANLABS-2017M1055630

PATIENT
  Age: 55 Year
  Sex: Male

DRUGS (6)
  1. PARALGIN FORTE [Concomitant]
     Active Substance: ACETAMINOPHEN\CODEINE PHOSPHATE
     Indication: BACK PAIN
     Dosage: TO BE TAKEN UP TO THREE TIMES DAILY
     Route: 048
  2. ALBYL-E [Concomitant]
     Active Substance: ASPIRIN\MAGNESIUM OXIDE
     Indication: HYPERTENSION
     Route: 048
  3. METFORMIN [Suspect]
     Active Substance: METFORMIN HYDROCHLORIDE
     Indication: TYPE 2 DIABETES MELLITUS
     Route: 048
  4. PARACET [Concomitant]
     Active Substance: ACETAMINOPHEN
     Dosage: 1 G TO BE TAKEN UP TO THREE TIMES DAILY
     Route: 048
  5. ATACAND PLUS [Concomitant]
     Active Substance: CANDESARTAN CILEXETIL\HYDROCHLOROTHIAZIDE
     Indication: HYPERTENSION
     Dosage: 32/12,5 MG
     Route: 048
  6. LIPITOR [Concomitant]
     Active Substance: ATORVASTATIN CALCIUM
     Indication: HYPERCHOLESTEROLAEMIA
     Route: 048

REACTIONS (2)
  - Lactic acidosis [Fatal]
  - Renal failure [Fatal]

NARRATIVE: CASE EVENT DATE: 201705
